FAERS Safety Report 5035205-2 (Version None)
Quarter: 2006Q2

REPORT INFORMATION
  Report Type: 
  Country: None (occurrence: None)
  Receive Date: 20060522
  Receipt Date: 20060412
  Transmission Date: 20061013
  Serious: Yes (Other)
  Sender: FDA-Public Use
  Company Number: US-JNJFOC-20050204994

PATIENT
  Age: 48 Year
  Sex: Female
  Weight: 102.0593 kg

DRUGS (23)
  1. RISPERDAL CONSTA [Suspect]
     Indication: PSYCHOTIC DISORDER
     Dosage: SEE IMAGE
     Route: 030
     Dates: start: 20040115, end: 20040515
  2. RISPERDAL CONSTA [Suspect]
     Indication: SCHIZOPHRENIA, PARANOID TYPE
     Dosage: SEE IMAGE
     Route: 030
     Dates: start: 20040115, end: 20040515
  3. RISPERDAL CONSTA [Suspect]
     Indication: PSYCHOTIC DISORDER
     Dosage: SEE IMAGE
     Route: 030
     Dates: start: 20040515, end: 20041001
  4. RISPERDAL CONSTA [Suspect]
     Indication: SCHIZOPHRENIA, PARANOID TYPE
     Dosage: SEE IMAGE
     Route: 030
     Dates: start: 20040515, end: 20041001
  5. RISPERDAL CONSTA [Suspect]
     Indication: PSYCHOTIC DISORDER
     Dosage: SEE IMAGE
     Route: 030
     Dates: start: 20040101
  6. RISPERDAL CONSTA [Suspect]
     Indication: SCHIZOPHRENIA, PARANOID TYPE
     Dosage: SEE IMAGE
     Route: 030
     Dates: start: 20040101
  7. RISPERDAL CONSTA [Suspect]
     Indication: PSYCHOTIC DISORDER
     Dosage: SEE IMAGE
     Route: 030
     Dates: start: 20050128
  8. RISPERDAL CONSTA [Suspect]
     Indication: SCHIZOPHRENIA, PARANOID TYPE
     Dosage: SEE IMAGE
     Route: 030
     Dates: start: 20050128
  9. DOPAMET (METHYLDOPA) TABLETS [Concomitant]
  10. TRILEPTOL (OXCARBAZEPINE) TABLETS [Concomitant]
  11. KEPPRA [Concomitant]
  12. LAMICTAL [Concomitant]
  13. LORTAB [Concomitant]
  14. TRAMADOL (TRAMADOL) TABLETS [Concomitant]
  15. FOLTX (ALL OTHER THERAPEUTIC PRODUCTS) TABLETS [Concomitant]
  16. LODINE (ETODOLAC) TABLETS [Concomitant]
  17. AXID (NIZATIDINE) TABLETS [Concomitant]
  18. HUMIBID (GUAIFENESIN) TABLETS [Concomitant]
  19. QVAR (BECLOMETASONE DIPROPIONATE) INHALATION [Concomitant]
  20. NASACORT (TRIAMCINOLONE ACETONIDE) SPRAY [Concomitant]
  21. ATIVAN [Concomitant]
  22. BENADRYL (DIPHENHYDRAMINE HYDROCHLORIDE) TABLETS [Concomitant]
  23. CLARITIN [Concomitant]

REACTIONS (14)
  - AKATHISIA [None]
  - ASTHENIA [None]
  - ASTHMA [None]
  - CONVULSION [None]
  - DEPRESSION [None]
  - DIPLOPIA [None]
  - DYSPNOEA [None]
  - FIBROMYALGIA [None]
  - GASTROOESOPHAGEAL REFLUX DISEASE [None]
  - NAUSEA [None]
  - SLEEP APNOEA SYNDROME [None]
  - TREMOR [None]
  - VOMITING [None]
  - WEIGHT INCREASED [None]
